FAERS Safety Report 11858022 (Version 1)
Quarter: 2015Q4

REPORT INFORMATION
  Report Type: Report from Study
  Country: AU (occurrence: AU)
  Receive Date: 20151222
  Receipt Date: 20151222
  Transmission Date: 20160305
  Serious: Yes (Death)
  Sender: FDA-Public Use
  Company Number: AU-SA-2015SA182213

PATIENT
  Age: 41 Year
  Sex: Male

DRUGS (3)
  1. PREDNISOLONE. [Suspect]
     Active Substance: PREDNISOLONE
     Indication: HISTIOCYTOSIS HAEMATOPHAGIC
     Dosage: FREQUENCY: VARIABLE
     Route: 048
     Dates: start: 20150812, end: 20151001
  2. CAMPATH [Suspect]
     Active Substance: ALEMTUZUMAB
     Indication: HISTIOCYTOSIS HAEMATOPHAGIC
     Dosage: FREQUENCY: VIW
     Route: 042
     Dates: end: 20151001
  3. PREDNISOLONE. [Suspect]
     Active Substance: PREDNISOLONE
     Indication: HISTIOCYTOSIS HAEMATOPHAGIC
     Dosage: FREQUENCY: VARIABLE
     Route: 042
     Dates: start: 20150812, end: 20151001

REACTIONS (2)
  - Klebsiella sepsis [Fatal]
  - Septic shock [Fatal]

NARRATIVE: CASE EVENT DATE: 20151001
